FAERS Safety Report 4860125-3 (Version None)
Quarter: 2005Q4

REPORT INFORMATION
  Report Type: 
  Country: None (occurrence: None)
  Receive Date: 20051215
  Receipt Date: 20051201
  Transmission Date: 20060501
  Serious: Yes (Life-Threatening, Other)
  Sender: FDA-Public Use
  Company Number: 2005158195

PATIENT
  Age: 59 Year
  Sex: Female
  Weight: 49 kg

DRUGS (6)
  1. IRINOTECAN HCL [Suspect]
     Indication: LUNG ADENOCARCINOMA
     Dosage: 60 MG/M2, INTRAVENOUS
     Route: 042
     Dates: start: 20050104
  2. CISPLATIN [Suspect]
     Indication: LUNG ADENOCARCINOMA
     Dosage: 80 MG/M2, INTRAVENOUS
     Route: 042
     Dates: start: 20050104
  3. SODIUM BICARBONATE IN PLASTIC CONTAINER [Concomitant]
  4. URSODIOL [Concomitant]
  5. MAGNESIUM OXIDE (MAGNESIUM OXIDE) [Concomitant]
  6. PRIMPERAN TAB [Concomitant]

REACTIONS (6)
  - CONVULSION [None]
  - DECREASED ACTIVITY [None]
  - DEPRESSED LEVEL OF CONSCIOUSNESS [None]
  - HYPONATRAEMIA [None]
  - INAPPROPRIATE ANTIDIURETIC HORMONE SECRETION [None]
  - VOMITING [None]
